FAERS Safety Report 25292704 (Version 1)
Quarter: 2025Q2

REPORT INFORMATION
  Report Type: Spontaneous
  Country: US (occurrence: US)
  Receive Date: 20250510
  Receipt Date: 20250510
  Transmission Date: 20250716
  Serious: Yes (Other)
  Sender: SANOFI AVENTIS
  Company Number: US-SA-2025SA124246

PATIENT
  Age: 7 Year
  Sex: Female
  Weight: 25 kg

DRUGS (1)
  1. DUPIXENT [Suspect]
     Active Substance: DUPILUMAB
     Indication: Eczema
     Dosage: 300 MG, Q4W
     Route: 058

REACTIONS (3)
  - Eczema [Unknown]
  - Rash [Unknown]
  - Drug ineffective [Unknown]
